FAERS Safety Report 8836787 (Version 1)
Quarter: 2012Q4

REPORT INFORMATION
  Report Type: Report from Study
  Country: JP (occurrence: JP)
  Receive Date: 20121012
  Receipt Date: 20121012
  Transmission Date: 20130627
  Serious: Yes (Hospitalization)
  Sender: FDA-Public Use
  Company Number: JP-VERTEX PHARMACEUTICAL INC.-AE-2012-008919

PATIENT
  Age: 62 Year
  Sex: Female

DRUGS (11)
  1. VX-950 [Suspect]
     Indication: HEPATITIS C
     Dosage: 2250 mg, qd
     Route: 048
     Dates: start: 20120418, end: 20120424
  2. VX-950 [Suspect]
     Dosage: 1500 mg, qd
     Route: 048
     Dates: start: 20120425, end: 20120515
  3. PEGINTRON                          /01543001/ [Suspect]
     Indication: HEPATITIS C
     Dosage: 1.35 UNK, UNK
     Route: 058
     Dates: start: 20120418, end: 20120515
  4. PEGINTRON                          /01543001/ [Suspect]
     Dosage: 1.35 UNK, UNK
     Route: 058
     Dates: start: 20120530
  5. REBETOL [Suspect]
     Indication: HEPATITIS C
     Dosage: 600 mg, qd
     Route: 048
     Dates: start: 20120418, end: 20120424
  6. REBETOL [Suspect]
     Dosage: 400 mg, qd
     Route: 048
     Dates: start: 20120425, end: 20120501
  7. REBETOL [Suspect]
     Dosage: 200 mg, qd
     Route: 048
     Dates: start: 20120502, end: 20120515
  8. REBETOL [Suspect]
     Dosage: 200 mg, qd
     Route: 048
     Dates: start: 20120530
  9. ALLELOCK [Concomitant]
     Route: 048
  10. CELESTAMINE                        /00252801/ [Concomitant]
     Route: 048
  11. MYSER                              /01249201/ [Concomitant]
     Route: 061

REACTIONS (1)
  - Renal impairment [Recovered/Resolved]
